FAERS Safety Report 5848979-5 (Version None)
Quarter: 2008Q3

REPORT INFORMATION
  Report Type: 
  Country: None (occurrence: None)
  Receive Date: 20080818
  Receipt Date: 20080818
  Transmission Date: 20090109
  Serious: Yes (Disabling)
  Sender: FDA-Public Use
  Company Number: None

PATIENT
  Age: 77 Year
  Sex: Female
  Weight: 84.369 kg

DRUGS (1)
  1. ADVAIR DISKUS 250/50 [Suspect]
     Indication: ASTHMA
     Dosage: 250/50  2 TIMES DAY  DISKUS
     Dates: start: 20080507, end: 20080721

REACTIONS (4)
  - HEADACHE [None]
  - NERVOUSNESS [None]
  - OROPHARYNGEAL PAIN [None]
  - TREMOR [None]
